FAERS Safety Report 7073134-3 (Version None)
Quarter: 2010Q4

REPORT INFORMATION
  Report Type: 
  Country: None (occurrence: None)
  Receive Date: 20101029
  Receipt Date: 20100429
  Transmission Date: 20110411
  Serious: No
  Sender: FDA-Public Use
  Company Number: A0857293A

PATIENT
  Age: 82 Year
  Sex: Female

DRUGS (12)
  1. ADVAIR DISKUS 100/50 [Suspect]
     Indication: CHRONIC OBSTRUCTIVE PULMONARY DISEASE
     Dosage: 1PUFF TWICE PER DAY
     Route: 055
     Dates: end: 20100428
  2. AMLODIPINE [Concomitant]
  3. LISINOPRIL [Concomitant]
  4. AMIODARONE HCL [Concomitant]
  5. PRILOSEC [Concomitant]
  6. ZOLOFT [Concomitant]
  7. XANAX [Concomitant]
  8. MULTI-VITAMINS [Concomitant]
  9. ASPIRIN [Concomitant]
  10. MUCINEX [Concomitant]
  11. FUROSEMIDE [Concomitant]
  12. POTASSIUM CHLORIDE [Concomitant]

REACTIONS (1)
  - SWOLLEN TONGUE [None]
